FAERS Safety Report 11920139 (Version 1)
Quarter: 2016Q1

REPORT INFORMATION
  Report Type: Spontaneous
  Country: US (occurrence: US)
  Receive Date: 20160115
  Receipt Date: 20160115
  Transmission Date: 20160526
  Serious: Yes (Other)
  Sender: FDA-Public Use
  Company Number: US-PFIZER INC-2016013079

PATIENT
  Age: 70 Year
  Sex: Female
  Weight: 64 kg

DRUGS (14)
  1. EFFEXOR XR [Suspect]
     Active Substance: VENLAFAXINE HYDROCHLORIDE
     Indication: DEPRESSION
     Dosage: 37.5 MG, UNK
  2. EFFEXOR XR [Interacting]
     Active Substance: VENLAFAXINE HYDROCHLORIDE
     Dosage: 75 MG, UNK (BEFORE BREAKFAST)
  3. EFFEXOR XR [Interacting]
     Active Substance: VENLAFAXINE HYDROCHLORIDE
     Dosage: TWO 150MG CAPSULES BEFORE BREAKFAST AND ADDITIONAL 75MG DOSE LATER IN THE DAY
     Dates: start: 201512
  4. IMODIUM [Concomitant]
     Active Substance: LOPERAMIDE HYDROCHLORIDE
     Indication: DIARRHOEA
     Dosage: 2 MG, DAILY
  5. EFFEXOR XR [Interacting]
     Active Substance: VENLAFAXINE HYDROCHLORIDE
     Dosage: 150 MG, UNK
  6. ATORVASTATIN [Concomitant]
     Active Substance: ATORVASTATIN
     Indication: BLOOD CHOLESTEROL INCREASED
     Dosage: 40 MG, DAILY
     Dates: start: 2015
  7. BIOTIN [Concomitant]
     Active Substance: BIOTIN
     Indication: NAIL NECROSIS
     Dosage: 2 DF, DAILY
     Dates: start: 201501
  8. LISINOPRIL. [Concomitant]
     Active Substance: LISINOPRIL
     Indication: BLOOD PRESSURE MEASUREMENT
     Dosage: 20 MG, DAILY
  9. DICYCLOMINE [Concomitant]
     Active Substance: DICYCLOMINE HYDROCHLORIDE
     Indication: ABDOMINAL PAIN UPPER
     Dosage: 10 MG, AS NEEDED
     Dates: start: 20151117
  10. TOPAMAX [Concomitant]
     Active Substance: TOPIRAMATE
     Indication: SLEEP DISORDER
     Dosage: 100 MG, DAILY (EVERY NIGHT)
  11. CLONIDINE. [Concomitant]
     Active Substance: CLONIDINE
     Indication: SLEEP DISORDER
     Dosage: 0.1 MG, DAILY
     Dates: start: 201501
  12. VITAMIN D3 [Concomitant]
     Active Substance: CHOLECALCIFEROL
     Indication: VITAMIN SUPPLEMENTATION
     Dosage: 3 DF, DAILY
  13. OMEPRAZOLE. [Interacting]
     Active Substance: OMEPRAZOLE
     Indication: GASTROOESOPHAGEAL REFLUX DISEASE
     Dosage: 20 MG, DAILY  (EVERY MORNING)
  14. PAMINE [Concomitant]
     Active Substance: METHSCOPOLAMINE BROMIDE
     Indication: GASTROOESOPHAGEAL REFLUX DISEASE
     Dosage: 2.5 MG, UNK (BEFORE MEALS)

REACTIONS (20)
  - Drug prescribing error [Unknown]
  - Drug interaction [Unknown]
  - Hyperhidrosis [Unknown]
  - Condition aggravated [Recovering/Resolving]
  - Flushing [Unknown]
  - Eye pruritus [Unknown]
  - Dyspepsia [Unknown]
  - Asthenia [Unknown]
  - Abdominal discomfort [Unknown]
  - Paraesthesia [Unknown]
  - Nausea [Unknown]
  - Retching [Recovered/Resolved]
  - Feeling abnormal [Unknown]
  - Abdominal pain upper [Unknown]
  - Ocular hyperaemia [Unknown]
  - Diarrhoea [Recovering/Resolving]
  - Peripheral coldness [Unknown]
  - Tremor [Unknown]
  - Malaise [Recovered/Resolved]
  - Tachycardia [Recovering/Resolving]

NARRATIVE: CASE EVENT DATE: 20150103
